FAERS Safety Report 10074477 (Version 1)
Quarter: 2014Q2

REPORT INFORMATION
  Report Type: Spontaneous
  Country: US (occurrence: US)
  Receive Date: 20140411
  Receipt Date: 20140411
  Transmission Date: 20141212
  Serious: No
  Sender: FDA-Public Use
  Company Number: US-SA-2013SA100323

PATIENT
  Age: 20 Year
  Sex: Male

DRUGS (1)
  1. ALLEGRA D [Suspect]
     Indication: SINUS DISORDER
     Dosage: DOSE : 60/120 MG
     Route: 048
     Dates: start: 20130925

REACTIONS (3)
  - Dysphagia [Unknown]
  - Wrong technique in drug usage process [Unknown]
  - Drug ineffective [Unknown]
